FAERS Safety Report 6204688-4 (Version None)
Quarter: 2009Q2

REPORT INFORMATION
  Report Type: 
  Country: None (occurrence: None)
  Receive Date: 20090527
  Receipt Date: 20090518
  Transmission Date: 20091009
  Serious: Yes (Hospitalization, Disabling)
  Sender: FDA-Public Use
  Company Number: PHHY2009BR19484

PATIENT
  Age: 71 Year
  Sex: Male
  Weight: 50 kg

DRUGS (2)
  1. DIOVAN HCT [Suspect]
     Indication: CARDIAC DISORDER
     Dosage: ONE TABLET DAILY
     Route: 048
     Dates: start: 20090401
  2. DIOVAN HCT [Suspect]
     Indication: HYPERTENSION

REACTIONS (6)
  - AMNESIA [None]
  - CEREBROVASCULAR ACCIDENT [None]
  - DYSARTHRIA [None]
  - GAIT DISTURBANCE [None]
  - HEMIPLEGIA [None]
  - VISUAL IMPAIRMENT [None]
